FAERS Safety Report 19521187 (Version 2)
Quarter: 2021Q3

REPORT INFORMATION
  Report Type: Other
  Country: IT (occurrence: IT)
  Receive Date: 20210712
  Receipt Date: 20210716
  Transmission Date: 20211014
  Serious: Yes (Other)
  Sender: FDA-Public Use
  Company Number: IT-ROCHE-2864013

PATIENT
  Age: 30 Year
  Sex: Female
  Weight: 64 kg

DRUGS (5)
  1. DEURSIL [Concomitant]
     Active Substance: URSODIOL
     Dosage: AT 12
  2. DECAPEPTYL [Concomitant]
     Dosage: Q28
     Route: 030
  3. KADCYLA [Suspect]
     Active Substance: ADO-TRASTUZUMAB EMTANSINE
     Indication: PRODUCT USED FOR UNKNOWN INDICATION
     Dosage: DOSE REGIMENT 3.6 MG/KG, LAST ADMINISTRATION BEFORE THE EVENT, PERFORMED ON 01/06/2021
     Route: 042
     Dates: start: 20210507
  4. AROMASIN [Concomitant]
     Active Substance: EXEMESTANE
  5. FLUIMUCIL [Concomitant]
     Active Substance: ACETYLCYSTEINE
     Dosage: AT 4PM FOR 7 DAYS.

REACTIONS (2)
  - Therapy change [Unknown]
  - Hypertransaminasaemia [Recovered/Resolved]

NARRATIVE: CASE EVENT DATE: 20210615
